FAERS Safety Report 9932774 (Version 4)
Quarter: 2015Q1

REPORT INFORMATION
  Report Type: Spontaneous
  Country: US (occurrence: US)
  Receive Date: 20140228
  Receipt Date: 20150326
  Transmission Date: 20150721
  Serious: Yes (Hospitalization, Other)
  Sender: FDA-Public Use
  Company Number: US-GLAXOSMITHKLINE-A1027739A

PATIENT
  Sex: Male

DRUGS (9)
  1. ADVAIR HFA [Suspect]
     Active Substance: FLUTICASONE PROPIONATE\SALMETEROL XINAFOATE
     Indication: ASTHMA
     Dosage: 250/50 MCGSTART DATE REPORTED AS 02 DEC 2008
     Route: 055
     Dates: start: 2005
  2. VENTOLIN [Suspect]
     Active Substance: ALBUTEROL SULFATE
     Indication: ASTHMA
     Dosage: 1 PUFF AS REQUIRED
     Route: 055
     Dates: start: 2009
  3. BYSTOLIC [Concomitant]
     Active Substance: NEBIVOLOL HYDROCHLORIDE
  4. BENADRYL [Concomitant]
     Active Substance: DIPHENHYDRAMINE HYDROCHLORIDE
  5. LOVAZA [Suspect]
     Active Substance: OMEGA-3-ACID ETHYL ESTERS
     Indication: BLOOD CHOLESTEROL INCREASED
     Dosage: 2 CAPSULES TWICE DAILY
     Route: 048
     Dates: start: 2012
  6. LAMICTAL [Suspect]
     Active Substance: LAMOTRIGINE
     Indication: SEIZURE
     Dosage: 100 MG AND 200 MG TABLETS AT UNKNOWN DOSING500 MG TWICE DAILY FOR TOTAL DAILY DOSE (1000MG)100 [...]
     Route: 048
     Dates: start: 20030101
  7. SUDAFED [Concomitant]
     Active Substance: PSEUDOEPHEDRINE HYDROCHLORIDE
  8. TESTOSTERONE. [Concomitant]
     Active Substance: TESTOSTERONE
  9. LISINOPRIL. [Concomitant]
     Active Substance: LISINOPRIL

REACTIONS (18)
  - Gingivitis [Unknown]
  - Drug administration error [Unknown]
  - Brain neoplasm [Not Recovered/Not Resolved]
  - Back disorder [Unknown]
  - Thyroid operation [Unknown]
  - Mental impairment [Not Recovered/Not Resolved]
  - Retinal detachment [Unknown]
  - Macular degeneration [Not Recovered/Not Resolved]
  - Arthropathy [Not Recovered/Not Resolved]
  - Aphthous stomatitis [Unknown]
  - Blood testosterone decreased [Unknown]
  - Radiotherapy [Not Recovered/Not Resolved]
  - Seizure [Not Recovered/Not Resolved]
  - Lipoma excision [Unknown]
  - Drug ineffective [Unknown]
  - Gait disturbance [Not Recovered/Not Resolved]
  - Stress [Unknown]
  - Hospitalisation [Unknown]
